FAERS Safety Report 9106908 (Version 1)
Quarter: 2013Q1

REPORT INFORMATION
  Report Type: Spontaneous
  Country: FR (occurrence: FR)
  Receive Date: 20130221
  Receipt Date: 20130221
  Transmission Date: 20140127
  Serious: Yes (Hospitalization, Other)
  Sender: FDA-Public Use
  Company Number: FR-BRISTOL-MYERS SQUIBB COMPANY-17382888

PATIENT
  Age: 67 Year
  Sex: Male

DRUGS (13)
  1. COUMADIN TABS 5 MG [Suspect]
     Indication: PULMONARY EMBOLISM
     Dates: start: 201203, end: 20121023
  2. COUMADIN TABS 5 MG [Suspect]
     Indication: ISCHAEMIC STROKE
     Dates: start: 201203, end: 20121023
  3. KARDEGIC [Suspect]
     Indication: ARTERIAL DISORDER
     Route: 048
     Dates: end: 20120702
  4. LEPTICUR [Concomitant]
  5. LOXAPAC [Concomitant]
  6. TAHOR [Concomitant]
  7. XATRAL LP [Concomitant]
  8. INEXIUM [Concomitant]
  9. CHIBRO-PROSCAR [Concomitant]
  10. TRIMEBUTINE [Concomitant]
  11. DIFFU-K [Concomitant]
  12. TRANSIPEG [Concomitant]
     Indication: CONSTIPATION
  13. DOLIPRANE [Concomitant]
     Indication: PAIN

REACTIONS (2)
  - Haematuria [Recovered/Resolved]
  - Sepsis [Recovered/Resolved]
